FAERS Safety Report 5082051-X (Version None)
Quarter: 2006Q3

REPORT INFORMATION
  Report Type: 
  Country: None (occurrence: None)
  Receive Date: 20060811
  Receipt Date: 20060802
  Transmission Date: 20061208
  Serious: Yes (Other)
  Sender: FDA-Public Use
  Company Number: 2006065109

PATIENT
  Age: 27 Year
  Sex: Female

DRUGS (2)
  1. DEPO-PROVERA [Suspect]
     Indication: VAGINAL INFECTION
     Dosage: SEE IMAGE
     Route: 030
     Dates: start: 20010101, end: 20010101
  2. DEPO-PROVERA [Suspect]
     Indication: VAGINAL INFECTION
     Dosage: SEE IMAGE
     Route: 030
     Dates: start: 20060501, end: 20060501

REACTIONS (8)
  - ABDOMINAL PAIN [None]
  - ASTHENIA [None]
  - DEHYDRATION [None]
  - DIARRHOEA [None]
  - DYSPAREUNIA [None]
  - ENDOMETRIAL DISORDER [None]
  - PELVIC FLUID COLLECTION [None]
  - VAGINAL INFECTION [None]
